FAERS Safety Report 16539552 (Version 4)
Quarter: 2024Q4

REPORT INFORMATION
  Report Type: Spontaneous
  Country: IN (occurrence: IN)
  Receive Date: 20190708
  Receipt Date: 20241126
  Transmission Date: 20250115
  Serious: Yes (Other)
  Sender: ROCHE
  Company Number: IN-002147023-PHHY2019IN154995

PATIENT

DRUGS (1)
  1. RANIBIZUMAB [Suspect]
     Active Substance: RANIBIZUMAB
     Indication: Product used for unknown indication
     Dosage: 2.3 MG IN 0.23 ML SOLUTION
     Route: 065
     Dates: start: 20190625

REACTIONS (4)
  - Vitreous haze [Unknown]
  - Vision blurred [Unknown]
  - Vitreous disorder [Unknown]
  - Retinal vasculitis [Unknown]

NARRATIVE: CASE EVENT DATE: 20190627
